FAERS Safety Report 16261001 (Version 1)
Quarter: 2019Q2

REPORT INFORMATION
  Report Type: Report from Study
  Country: US (occurrence: US)
  Receive Date: 20190501
  Receipt Date: 20190501
  Transmission Date: 20190711
  Serious: Yes (Hospitalization)
  Sender: FDA-Public Use
  Company Number: US-ACTELION-A-NJ2019-186986

PATIENT
  Age: 48 Year
  Sex: Male

DRUGS (15)
  1. ALPRAZOLAM. [Concomitant]
     Active Substance: ALPRAZOLAM
  2. MUPIROCIN. [Concomitant]
     Active Substance: MUPIROCIN
  3. FUROSEMIDE. [Concomitant]
     Active Substance: FUROSEMIDE
  4. PANTOPRAZOLE [Concomitant]
     Active Substance: PANTOPRAZOLE
  5. ALBUTEROL. [Concomitant]
     Active Substance: ALBUTEROL
  6. METOPROLOL SUCCINATE. [Concomitant]
     Active Substance: METOPROLOL SUCCINATE
  7. BASAGLAR [Concomitant]
     Active Substance: INSULIN GLARGINE
  8. METFORMIN [Concomitant]
     Active Substance: METFORMIN HYDROCHLORIDE
  9. TYLENOL [Concomitant]
     Active Substance: ACETAMINOPHEN
  10. SILDENAFIL. [Concomitant]
     Active Substance: SILDENAFIL
  11. OPSUMIT [Suspect]
     Active Substance: MACITENTAN
     Indication: PULMONARY HYPERTENSION
     Dosage: 10 MG, QD
     Route: 048
     Dates: end: 20190408
  12. EPLERENONE. [Concomitant]
     Active Substance: EPLERENONE
  13. LYRICA [Concomitant]
     Active Substance: PREGABALIN
  14. OXYCODONE/APAP [Concomitant]
     Active Substance: ACETAMINOPHEN\OXYCODONE HYDROCHLORIDE
  15. XIFAXAN [Concomitant]
     Active Substance: RIFAXIMIN

REACTIONS (5)
  - Influenza [Recovered/Resolved]
  - Life support [Not Recovered/Not Resolved]
  - Dyspnoea [Unknown]
  - Malaise [Unknown]
  - Product dose omission [Unknown]

NARRATIVE: CASE EVENT DATE: 20190205
